FAERS Safety Report 7057149-7 (Version None)
Quarter: 2010Q4

REPORT INFORMATION
  Report Type: 
  Country: None (occurrence: None)
  Receive Date: 20101022
  Receipt Date: 20101012
  Transmission Date: 20110411
  Serious: Yes (Other)
  Sender: FDA-Public Use
  Company Number: PHHY2010US62242

PATIENT
  Sex: Female

DRUGS (2)
  1. RECLAST [Suspect]
     Dosage: 5 MG
     Route: 042
  2. ACTONEL [Suspect]

REACTIONS (2)
  - ABDOMINAL DISCOMFORT [None]
  - FALL [None]
